FAERS Safety Report 18728574 (Version 7)
Quarter: 2021Q2

REPORT INFORMATION
  Report Type: Spontaneous
  Country: US (occurrence: US)
  Receive Date: 20210112
  Receipt Date: 20210629
  Transmission Date: 20210717
  Serious: Yes (Other)
  Sender: FDA-Public Use
  Company Number: US-GLAXOSMITHKLINE-US2021AMR005734

PATIENT
  Sex: Female
  Weight: 125.1 kg

DRUGS (6)
  1. ZEJULA [Suspect]
     Active Substance: NIRAPARIB
     Dosage: UNK
     Route: 048
  2. ZEJULA [Suspect]
     Active Substance: NIRAPARIB
     Dosage: 300 MG, QD
     Route: 048
  3. ZEJULA [Suspect]
     Active Substance: NIRAPARIB
     Dosage: 200 MG, QD
     Route: 048
  4. CPAP (CONTINUOUS POSITIVE AIRWAY PRESSURE) [Suspect]
     Active Substance: DEVICE
     Indication: PRODUCT USED FOR UNKNOWN INDICATION
     Dosage: UNK
     Route: 065
  5. ZEJULA [Suspect]
     Active Substance: NIRAPARIB
     Indication: OVARIAN CANCER
     Dosage: 300 MG, QD
     Route: 048
     Dates: start: 20201227
  6. ZEJULA [Suspect]
     Active Substance: NIRAPARIB
     Dosage: 200 MG, QD
     Route: 048

REACTIONS (26)
  - Nausea [Unknown]
  - Gait disturbance [Unknown]
  - Decreased appetite [Unknown]
  - Sinusitis [Recovering/Resolving]
  - Paranasal sinus discomfort [Unknown]
  - Platelet count decreased [Unknown]
  - Erythema [Unknown]
  - Insomnia [Not Recovered/Not Resolved]
  - Gingival bleeding [Unknown]
  - Upper-airway cough syndrome [Recovered/Resolved with Sequelae]
  - Thrombocytopenia [Unknown]
  - Arthralgia [Recovering/Resolving]
  - Contusion [Unknown]
  - Skin disorder [Unknown]
  - Anxiety [Not Recovered/Not Resolved]
  - Vomiting [Unknown]
  - Headache [Unknown]
  - Myalgia [Unknown]
  - Blood pressure increased [Unknown]
  - Asthenia [Unknown]
  - Rhinalgia [Recovered/Resolved with Sequelae]
  - Hypersensitivity [Not Recovered/Not Resolved]
  - Constipation [Unknown]
  - Ear pain [Unknown]
  - Stress [Unknown]
  - Product dose omission issue [Unknown]
